FAERS Safety Report 9221074 (Version 3)
Quarter: 2013Q4

REPORT INFORMATION
  Report Type: Spontaneous
  Country: ES (occurrence: ES)
  Receive Date: 20130409
  Receipt Date: 20131204
  Transmission Date: 20140711
  Serious: Yes (Death, Hospitalization, Other)
  Sender: FDA-Public Use
  Company Number: ES-CELGENEUS-144-50794-13040002

PATIENT
  Sex: 0

DRUGS (2)
  1. VIDAZA [Suspect]
     Indication: ACUTE MYELOID LEUKAEMIA
     Dosage: 74 MILLIGRAM/SQ. METER
     Route: 065
     Dates: start: 2008
  2. VIDAZA [Suspect]
     Indication: MYELODYSPLASTIC SYNDROME
     Dosage: 74 MILLIGRAM/SQ. METER
     Route: 065
     Dates: start: 2008

REACTIONS (14)
  - Infection [Fatal]
  - Febrile infection [Unknown]
  - Aspergillus infection [Unknown]
  - Pyrexia [Unknown]
  - Febrile neutropenia [Unknown]
  - Pneumonia [Unknown]
  - Pneumocystis jirovecii pneumonia [Unknown]
  - Pneumonia bacterial [Unknown]
  - Pneumonia escherichia [Unknown]
  - Upper respiratory tract infection [Unknown]
  - Soft tissue infection [Unknown]
  - Urinary tract infection [Unknown]
  - Bacterial infection [Unknown]
  - Candida infection [Unknown]
